FAERS Safety Report 22527883 (Version 1)
Quarter: 2023Q2

REPORT INFORMATION
  Report Type: Spontaneous
  Country: US (occurrence: US)
  Receive Date: 20230606
  Receipt Date: 20230606
  Transmission Date: 20230722
  Serious: Yes (Hospitalization)
  Sender: FDA-Public Use
  Company Number: US-LUNDBECK-DKLU3062959

PATIENT
  Age: 42 Year
  Sex: Male

DRUGS (4)
  1. SABRIL [Suspect]
     Active Substance: VIGABATRIN
     Indication: Idiopathic generalised epilepsy
     Route: 048
     Dates: start: 201609
  2. SABRIL [Suspect]
     Active Substance: VIGABATRIN
     Indication: Epilepsy
  3. SABRIL [Suspect]
     Active Substance: VIGABATRIN
     Indication: Partial seizures
  4. SABRIL [Suspect]
     Active Substance: VIGABATRIN
     Indication: Focal dyscognitive seizures

REACTIONS (2)
  - Constipation [Unknown]
  - Vomiting [Unknown]
